FAERS Safety Report 8699562 (Version 2)
Quarter: 2013Q1

REPORT INFORMATION
  Report Type: Spontaneous
  Country: US (occurrence: US)
  Receive Date: 20120802
  Receipt Date: 20130110
  Transmission Date: 20140127
  Serious: Yes (Hospitalization)
  Sender: FDA-Public Use
  Company Number: US-ASTRAZENECA-2012SE52417

PATIENT
  Age: 48 Year
  Sex: Female
  Weight: 63.5 kg

DRUGS (16)
  1. SEROQUEL XR [Suspect]
     Indication: SCHIZOPHRENIA
     Route: 048
     Dates: end: 20120610
  2. SEROQUEL XR [Suspect]
     Indication: BIPOLAR I DISORDER
     Route: 048
     Dates: end: 20120610
  3. SEROQUEL XR [Suspect]
     Indication: HYPERSOMNIA
     Route: 048
     Dates: end: 20120610
  4. SEROQUEL XR [Suspect]
     Indication: SCHIZOPHRENIA
     Route: 048
     Dates: start: 20120614
  5. SEROQUEL XR [Suspect]
     Indication: BIPOLAR I DISORDER
     Route: 048
     Dates: start: 20120614
  6. SEROQUEL XR [Suspect]
     Indication: HYPERSOMNIA
     Route: 048
     Dates: start: 20120614
  7. SEROQUEL XR [Suspect]
     Indication: SCHIZOPHRENIA
     Route: 048
     Dates: start: 2002, end: 201212
  8. SEROQUEL XR [Suspect]
     Indication: BIPOLAR I DISORDER
     Route: 048
     Dates: start: 2002, end: 201212
  9. SEROQUEL XR [Suspect]
     Indication: HYPERSOMNIA
     Route: 048
     Dates: start: 2002, end: 201212
  10. PROZAC [Concomitant]
  11. RESTEROL [Concomitant]
  12. MERATIN [Concomitant]
  13. EFFEXOR [Concomitant]
     Dates: start: 2002
  14. TRAZADONE [Concomitant]
     Dates: start: 2002
  15. CLONAZEPAM [Concomitant]
     Dates: start: 2002
  16. EXCEDRIN [Concomitant]
     Dosage: AS REQUIRED

REACTIONS (5)
  - Insomnia [Not Recovered/Not Resolved]
  - Hallucination, auditory [Recovered/Resolved]
  - Hallucination, visual [Recovered/Resolved]
  - Performance status decreased [Recovered/Resolved]
  - Drug dose omission [Recovered/Resolved]
